FAERS Safety Report 13867507 (Version 8)
Quarter: 2019Q1

REPORT INFORMATION
  Report Type: Report from Study
  Country: JP (occurrence: JP)
  Receive Date: 20170814
  Receipt Date: 20190129
  Transmission Date: 20190417
  Serious: Yes (Hospitalization)
  Sender: FDA-Public Use
  Company Number: JP-BAUSCH-BL-2017-023848

PATIENT
  Age: 55 Year
  Sex: Male
  Weight: 73 kg

DRUGS (52)
  1. ISOMYTAL [Suspect]
     Active Substance: AMOBARBITAL SODIUM
     Indication: DRUG DEPENDENCE
     Dosage: GRANULE
     Route: 048
  2. COMCLO [Suspect]
     Active Substance: CLOBETASOL PROPIONATE
     Indication: PRODUCT USED FOR UNKNOWN INDICATION
     Route: 061
  3. DERMOVATE SCALP [Suspect]
     Active Substance: CLOBETASOL
     Indication: PRODUCT USED FOR UNKNOWN INDICATION
     Route: 061
  4. MEPTIN [Concomitant]
     Active Substance: PROCATEROL HYDROCHLORIDE
     Indication: PRODUCT USED FOR UNKNOWN INDICATION
     Dosage: INHALER, PRN, AS NEEDED, RESPIRATORY
     Route: 065
  5. KEFRAL [Concomitant]
     Active Substance: CEFACLOR
     Indication: PRODUCT USED FOR UNKNOWN INDICATION
     Dosage: UNSPECIFIED FORM
     Route: 048
     Dates: start: 20170529, end: 20170601
  6. LACTOSE [Concomitant]
     Active Substance: LACTOSE
     Indication: PRODUCT USED FOR UNKNOWN INDICATION
     Dosage: GRANULE
     Route: 048
  7. ACUATIM [Concomitant]
     Active Substance: NADIFLOXACIN
     Indication: PRODUCT USED FOR UNKNOWN INDICATION
     Dosage: EXTRA FORMULATION
     Route: 061
     Dates: start: 20170529, end: 20170606
  8. HIBON [Concomitant]
     Active Substance: RIBOFLAVIN
     Indication: PRODUCT USED FOR UNKNOWN INDICATION
     Route: 048
  9. OLOPATADINE HYDROCHLORIDE OD [Concomitant]
     Indication: PRODUCT USED FOR UNKNOWN INDICATION
     Route: 048
     Dates: start: 20171115, end: 20171122
  10. LUMICEF [Suspect]
     Active Substance: BRODALUMAB
     Indication: PSORIASIS
     Route: 058
     Dates: start: 20170523, end: 20170606
  11. HALRACK [Suspect]
     Active Substance: TRIAZOLAM
     Indication: INSOMNIA
  12. PARIET [Concomitant]
     Active Substance: RABEPRAZOLE SODIUM
     Indication: PRODUCT USED FOR UNKNOWN INDICATION
     Route: 048
  13. ATARAX-P [Concomitant]
     Active Substance: HYDROXYZINE HYDROCHLORIDE
     Indication: PSORIASIS
     Route: 048
     Dates: end: 20170620
  14. CINAL [Concomitant]
     Active Substance: ASCORBIC ACID\CALCIUM PANTOTHENATE
     Indication: PRODUCT USED FOR UNKNOWN INDICATION
     Route: 048
  15. CALONAL [Concomitant]
     Active Substance: ACETAMINOPHEN
     Dosage: AS NEEDED (PRN)
     Route: 048
  16. HALCION [Concomitant]
     Active Substance: TRIAZOLAM
     Route: 048
     Dates: start: 20171117, end: 20171123
  17. OXAROL [Concomitant]
     Active Substance: MAXACALCITOL
     Indication: PRODUCT USED FOR UNKNOWN INDICATION
     Route: 061
     Dates: start: 20171113, end: 20171113
  18. FLUNITRAZEPAM [Suspect]
     Active Substance: FLUNITRAZEPAM
     Indication: INSOMNIA
  19. BROVARIN [Suspect]
     Active Substance: BROMISOVAL
     Indication: DRUG DEPENDENCE
     Dosage: (EXCEPT (DPO))
     Route: 048
  20. MARDUOX [Suspect]
     Active Substance: BETAMETHASONE BUTYRATE PROPIONATE\MAXACALCITOL
     Indication: PSORIASIS
     Dosage: ADEQUATE DOSE
     Route: 061
  21. ALLELOCK [Concomitant]
     Active Substance: OLOPATADINE HYDROCHLORIDE
     Route: 048
     Dates: start: 20170602
  22. CINAL [Concomitant]
     Active Substance: ASCORBIC ACID\CALCIUM PANTOTHENATE
     Route: 048
     Dates: end: 20171205
  23. FLUTIFORM [Concomitant]
     Active Substance: FLUTICASONE PROPIONATE\FORMOTEROL FUMARATE
     Indication: PRODUCT USED FOR UNKNOWN INDICATION
     Dosage: RESPIRATORY,INHALER
  24. CALONAL [Concomitant]
     Active Substance: ACETAMINOPHEN
     Indication: PRODUCT USED FOR UNKNOWN INDICATION
     Dosage: AS NEEDED (PRN)
     Route: 048
  25. HALCION [Concomitant]
     Active Substance: TRIAZOLAM
     Indication: PRODUCT USED FOR UNKNOWN INDICATION
     Route: 048
     Dates: start: 20171113, end: 20171113
  26. RISPERIDONE. [Concomitant]
     Active Substance: RISPERIDONE
     Indication: SEDATION
     Dosage: EXCEPT SYRUP
     Route: 048
     Dates: start: 20171117, end: 20171123
  27. NORVASC [Concomitant]
     Active Substance: AMLODIPINE BESYLATE
     Indication: HYPERTENSION
     Route: 048
  28. ISOMYTAL [Suspect]
     Active Substance: AMOBARBITAL SODIUM
     Indication: INSOMNIA
  29. MARDUOX [Concomitant]
     Active Substance: BETAMETHASONE BUTYRATE PROPIONATE\MAXACALCITOL
     Indication: PRODUCT USED FOR UNKNOWN INDICATION
     Route: 061
  30. FAMOTIDINE D [Concomitant]
     Active Substance: FAMOTIDINE
     Indication: PRODUCT USED FOR UNKNOWN INDICATION
     Route: 048
  31. GENTAMICIN SULFATE. [Concomitant]
     Active Substance: GENTAMICIN SULFATE
     Indication: PRODUCT USED FOR UNKNOWN INDICATION
     Route: 061
  32. LANSOPRAZOLE OD [Concomitant]
     Active Substance: LANSOPRAZOLE
     Indication: PRODUCT USED FOR UNKNOWN INDICATION
     Route: 048
     Dates: start: 20171117, end: 20171123
  33. LUMICEF [Suspect]
     Active Substance: BRODALUMAB
     Dosage: 2 MONTHS 10 DAYS
     Route: 058
     Dates: start: 20170621, end: 20170830
  34. BROVARIN [Suspect]
     Active Substance: BROMISOVAL
     Indication: INSOMNIA
  35. KIPRES [Concomitant]
     Active Substance: MONTELUKAST SODIUM
     Indication: PRODUCT USED FOR UNKNOWN INDICATION
     Route: 048
  36. PYDOXAL [Concomitant]
     Active Substance: PYRIDOXAL
     Indication: PRODUCT USED FOR UNKNOWN INDICATION
     Route: 048
  37. SILECE [Concomitant]
     Active Substance: FLUNITRAZEPAM
     Indication: PRODUCT USED FOR UNKNOWN INDICATION
     Route: 048
     Dates: start: 20171113, end: 20171113
  38. SILECE [Concomitant]
     Active Substance: FLUNITRAZEPAM
     Route: 048
     Dates: start: 20171117, end: 20171123
  39. ALLELOCK [Concomitant]
     Active Substance: OLOPATADINE HYDROCHLORIDE
     Indication: PRODUCT USED FOR UNKNOWN INDICATION
     Route: 048
  40. NEORAL [Concomitant]
     Active Substance: CYCLOSPORINE
     Indication: PRODUCT USED FOR UNKNOWN INDICATION
     Route: 048
     Dates: start: 20171206
  41. LUMICEF [Suspect]
     Active Substance: BRODALUMAB
     Dosage: 1 MONTH 13 DAYS
     Route: 058
     Dates: start: 20170916, end: 20171028
  42. FLUNITRAZEPAM [Suspect]
     Active Substance: FLUNITRAZEPAM
     Indication: DRUG DEPENDENCE
     Route: 048
  43. ALLELOCK [Concomitant]
     Active Substance: OLOPATADINE HYDROCHLORIDE
     Indication: PSORIASIS
     Route: 048
  44. INTAL [Concomitant]
     Active Substance: CROMOLYN SODIUM
     Indication: PRODUCT USED FOR UNKNOWN INDICATION
     Dosage: AS NEEDED, INHALER
     Route: 061
  45. BESOFTEN [Concomitant]
     Active Substance: PENTOSAN POLYSULFATE SODIUM
     Indication: PRODUCT USED FOR UNKNOWN INDICATION
     Dosage: EXTRA FORMULATION
     Route: 061
  46. FULMETA [Concomitant]
     Active Substance: MOMETASONE
     Indication: PRODUCT USED FOR UNKNOWN INDICATION
     Route: 061
     Dates: start: 20171113, end: 20171113
  47. HALRACK [Suspect]
     Active Substance: TRIAZOLAM
     Indication: DRUG DEPENDENCE
     Route: 048
  48. HIRUDOID [Concomitant]
     Active Substance: GLYCOSAMINOGLYCANS
     Indication: PRODUCT USED FOR UNKNOWN INDICATION
     Dosage: EXCEPT LOTION FOR EYE
     Route: 061
  49. ANTEBATE [Concomitant]
     Active Substance: BETAMETHASONE DIPROPIONATE
     Indication: PRODUCT USED FOR UNKNOWN INDICATION
     Route: 061
     Dates: start: 20171113, end: 20171113
  50. MUCODYNE [Concomitant]
     Active Substance: CARBOCYSTEINE
     Indication: PRODUCT USED FOR UNKNOWN INDICATION
     Route: 048
     Dates: start: 20171117, end: 20171123
  51. AMBROXOL HYDROCHLORIDE [Concomitant]
     Active Substance: AMBROXOL HYDROCHLORIDE
     Indication: PRODUCT USED FOR UNKNOWN INDICATION
     Route: 048
     Dates: start: 20171117, end: 20171123
  52. NORVASC [Concomitant]
     Active Substance: AMLODIPINE BESYLATE
     Indication: PRODUCT USED FOR UNKNOWN INDICATION
     Route: 048

REACTIONS (5)
  - Urticaria [Recovering/Resolving]
  - Hypohidrosis [Recovering/Resolving]
  - Headache [Recovering/Resolving]
  - Furuncle [Recovering/Resolving]
  - Pneumonia [Recovered/Resolved]

NARRATIVE: CASE EVENT DATE: 20170529
